FAERS Safety Report 24018609 (Version 1)
Quarter: 2024Q2

REPORT INFORMATION
  Report Type: Spontaneous
  Country: TW (occurrence: TW)
  Receive Date: 20240627
  Receipt Date: 20240627
  Transmission Date: 20240715
  Serious: Yes (Death, Other)
  Sender: FDA-Public Use
  Company Number: TW-STRIDES ARCOLAB LIMITED-2024SP007442

PATIENT
  Age: 51 Year
  Sex: Male

DRUGS (15)
  1. ETOPOSIDE [Suspect]
     Active Substance: ETOPOSIDE
     Indication: Squamous cell carcinoma of head and neck
     Dosage: 70 MILLIGRAM/SQ. METER, CYCLICAL (RECEIVED ON DAY 1, DAY 2, DAY 3, 21 DAYS A CYCLE)
     Route: 065
  2. METHOTREXATE [Suspect]
     Active Substance: METHOTREXATE
     Indication: Squamous cell carcinoma of head and neck
     Dosage: 40 MILLIGRAM/SQ. METER, ONCE A WEEK
     Route: 065
  3. PEMBROLIZUMAB [Suspect]
     Active Substance: PEMBROLIZUMAB
     Indication: Squamous cell carcinoma of head and neck
     Dosage: UNK
     Route: 065
     Dates: start: 2020, end: 202010
  4. CETUXIMAB [Suspect]
     Active Substance: CETUXIMAB
     Indication: Squamous cell carcinoma of head and neck
     Dosage: 400 MILLIGRAM/SQ. METER (RECEIVED LOADING DOSE)
     Route: 065
  5. CETUXIMAB [Suspect]
     Active Substance: CETUXIMAB
     Dosage: 250 MILLIGRAM/SQ. METER, ONCE A WEEK
     Route: 065
  6. CETUXIMAB [Suspect]
     Active Substance: CETUXIMAB
     Dosage: 250 MILLIGRAM/SQ. METER, ONCE A WEEK
     Route: 065
  7. PACLITAXEL [Suspect]
     Active Substance: PACLITAXEL
     Indication: Squamous cell carcinoma of head and neck
     Dosage: 80 MILLIGRAM/SQ. METER, CYCLICAL (RECEIVED ON DAY1, DAY 8, 21 DAYS A CYCLE)
     Route: 065
  8. AFATINIB [Suspect]
     Active Substance: AFATINIB
     Indication: Squamous cell carcinoma of head and neck
     Dosage: 40 MILLIGRAM, QD
     Route: 065
  9. GEMCITABINE [Suspect]
     Active Substance: GEMCITABINE
     Indication: Squamous cell carcinoma of head and neck
     Dosage: 800 MILLIGRAM/SQ. METER, CYCLICAL (RECEIVED ON DAY 1, DAY 8, 21 DAYS A CYCLE)
     Route: 065
  10. VINORELBINE [Suspect]
     Active Substance: VINORELBINE TARTRATE
     Indication: Squamous cell carcinoma of head and neck
     Dosage: 20 MILLIGRAM/SQ. METER, CYCLICAL (RECEIVED ON DAY 1, DAY 8, 21 DAYS A CYCLE)
     Route: 065
  11. ALPELISIB [Suspect]
     Active Substance: ALPELISIB
     Indication: Squamous cell carcinoma of head and neck
     Dosage: 150 MILLIGRAM, BID (RECEIVED CRUSHED PILLS)
     Route: 065
  12. CISPLATIN [Suspect]
     Active Substance: CISPLATIN
     Indication: Squamous cell carcinoma
     Dosage: 35 MILLIGRAM/SQ. METER, CYCLICAL (RECEIVED ON DAY  1 AND DAY 8, 21 DAYS A CYCLE)
     Route: 065
  13. CISPLATIN [Suspect]
     Active Substance: CISPLATIN
     Indication: Squamous cell carcinoma of head and neck
  14. METFORMIN [Concomitant]
     Active Substance: METFORMIN HYDROCHLORIDE
     Indication: Hyperglycaemia
     Dosage: UNK
     Route: 065
  15. PIOGLITAZONE [Concomitant]
     Active Substance: PIOGLITAZONE
     Indication: Hyperglycaemia
     Dosage: UNK
     Route: 065

REACTIONS (4)
  - Sepsis [Fatal]
  - Pneumonia aspiration [Unknown]
  - Drug ineffective for unapproved indication [Unknown]
  - Malignant neoplasm progression [Unknown]

NARRATIVE: CASE EVENT DATE: 20210714
